FAERS Safety Report 15908403 (Version 2)
Quarter: 2020Q1

REPORT INFORMATION
  Report Type: Spontaneous
  Country: US (occurrence: US)
  Receive Date: 20190204
  Receipt Date: 20200206
  Transmission Date: 20200409
  Serious: No
  Sender: FDA-Public Use
  Company Number: US-ABBVIE-18K-163-2220066-00

PATIENT

DRUGS (1)
  1. HUMIRA [Suspect]
     Active Substance: ADALIMUMAB
     Indication: PRODUCT USED FOR UNKNOWN INDICATION
     Route: 058

REACTIONS (10)
  - Overweight [Unknown]
  - Insomnia [Unknown]
  - Skin exfoliation [Unknown]
  - Axillary pain [Unknown]
  - Secretion discharge [Not Recovered/Not Resolved]
  - Condition aggravated [Recovering/Resolving]
  - Exercise tolerance decreased [Unknown]
  - Sensitive skin [Unknown]
  - Spondylitis [Unknown]
  - Rash [Unknown]
